FAERS Safety Report 9448959 (Version 1)
Quarter: 2013Q3

REPORT INFORMATION
  Report Type: Spontaneous
  Country: GB (occurrence: GB)
  Receive Date: 20130808
  Receipt Date: 20130808
  Transmission Date: 20140515
  Serious: Yes (Congenital Anomaly)
  Sender: FDA-Public Use
  Company Number: GB-TEVA-423465ISR

PATIENT
  Sex: Male

DRUGS (1)
  1. PAROXETINE [Suspect]
     Indication: ANXIETY
     Dates: start: 20110106, end: 20110309

REACTIONS (1)
  - Fallot^s tetralogy [Not Recovered/Not Resolved]
